FAERS Safety Report 25662209 (Version 1)
Quarter: 2025Q3

REPORT INFORMATION
  Report Type: Spontaneous
  Country: JP (occurrence: JP)
  Receive Date: 20250810
  Receipt Date: 20250810
  Transmission Date: 20251021
  Serious: Yes (Other)
  Sender: JAZZ
  Company Number: JP-JAZZ PHARMACEUTICALS-2024-JP-020497

PATIENT
  Age: 78 Year
  Sex: Female

DRUGS (1)
  1. VYXEOS [Suspect]
     Active Substance: CYTARABINE\DAUNORUBICIN
     Indication: Acute myeloid leukaemia

REACTIONS (6)
  - Liver disorder [Recovered/Resolved]
  - Rash erythematous [Recovered/Resolved]
  - Rash erythematous [Recovering/Resolving]
  - Inflammation [Unknown]
  - Pyrexia [Unknown]
  - Pyrexia [Unknown]
